FAERS Safety Report 8213267-9 (Version None)
Quarter: 2012Q1

REPORT INFORMATION
  Report Type: 
  Country: None (occurrence: None)
  Receive Date: 20120315
  Receipt Date: 20120309
  Transmission Date: 20120608
  Serious: Yes (Other)
  Sender: FDA-Public Use
  Company Number: GB-BAXTER-2012BH007241

PATIENT

DRUGS (2)
  1. TISSEEL VH [Suspect]
     Indication: SPINAL OPERATION
     Route: 065
  2. TACHOSIL [Suspect]
     Indication: SPINAL OPERATION
     Route: 065

REACTIONS (2)
  - HAEMATOMA [None]
  - CAUDA EQUINA SYNDROME [None]
